FAERS Safety Report 6128987-X (Version None)
Quarter: 2009Q1

REPORT INFORMATION
  Report Type: 
  Country: None (occurrence: None)
  Receive Date: 20090324
  Receipt Date: 20090313
  Transmission Date: 20090719
  Serious: Yes (Hospitalization)
  Sender: FDA-Public Use
  Company Number: PHHY2009MX10496

PATIENT
  Age: 85 Year
  Sex: Male

DRUGS (2)
  1. DIOVAN [Suspect]
     Indication: HYPERTENSION
     Dosage: 1 DF(160 MG), QD
     Dates: start: 20040101
  2. DIOVAN [Suspect]
     Dosage: 0.5 DF
     Dates: start: 20090311

REACTIONS (2)
  - CARDIAC DISORDER [None]
  - CARDIAC PACEMAKER INSERTION [None]
